FAERS Safety Report 7945866-3 (Version None)
Quarter: 2011Q4

REPORT INFORMATION
  Report Type: 
  Country: None (occurrence: None)
  Receive Date: 20111129
  Receipt Date: 20111118
  Transmission Date: 20120403
  Serious: Yes (Other)
  Sender: FDA-Public Use
  Company Number: PHHY2011JP82221

PATIENT
  Sex: Female

DRUGS (2)
  1. DEPAKENE [Suspect]
     Route: 048
  2. TEGRETOL [Suspect]
     Route: 048

REACTIONS (2)
  - OVARIAN NEOPLASM [None]
  - OVULATION DISORDER [None]
